FAERS Safety Report 8463058-9 (Version None)
Quarter: 2012Q2

REPORT INFORMATION
  Report Type: 
  Country: None (occurrence: None)
  Receive Date: 20120323
  Receipt Date: 20111107
  Transmission Date: 20120825
  Serious: Yes (Hospitalization)
  Sender: FDA-Public Use
  Company Number: 163-21880-11111069

PATIENT
  Age: 68 Year
  Sex: Male

DRUGS (5)
  1. LENALIDOMIDE [Suspect]
     Indication: MYELODYSPLASTIC SYNDROME
     Dosage: 10 MG, X 28 CAPS,PO
     Route: 048
     Dates: start: 20111025
  2. LOTREL [Concomitant]
  3. SYTHROID (LEVOTHYROXINE SODIUM) [Concomitant]
  4. KETOCONAZOLE [Concomitant]
  5. CENTRUM SILVER (CENTRUM SILVER) [Concomitant]

REACTIONS (1)
  - RED BLOOD CELL COUNT DECREASED [None]
